FAERS Safety Report 12845113 (Version 2)
Quarter: 2016Q4

REPORT INFORMATION
  Report Type: Report from Study
  Country: None (occurrence: US)
  Receive Date: 20161013
  Receipt Date: 20161207
  Transmission Date: 20170207
  Serious: Yes (Hospitalization, Other)
  Sender: FDA-Public Use
  Company Number: US-ABBVIE-16K-163-1751278-00

PATIENT
  Sex: Male
  Weight: 147.55 kg

DRUGS (1)
  1. HUMIRA [Suspect]
     Active Substance: ADALIMUMAB
     Indication: PSORIASIS
     Route: 058
     Dates: start: 2012

REACTIONS (8)
  - Fall [Recovering/Resolving]
  - Injection site pain [Unknown]
  - Seizure [Recovering/Resolving]
  - Urinary incontinence [Recovered/Resolved]
  - Haemorrhage intracranial [Recovered/Resolved]
  - Seizure [Recovering/Resolving]
  - Head injury [Recovering/Resolving]
  - Road traffic accident [Recovering/Resolving]

NARRATIVE: CASE EVENT DATE: 2015
